FAERS Safety Report 10516595 (Version 1)
Quarter: 2014Q4

REPORT INFORMATION
  Report Type: Spontaneous
  Country: US (occurrence: US)
  Receive Date: 20141014
  Receipt Date: 20141014
  Transmission Date: 20150528
  Serious: No
  Sender: FDA-Public Use
  Company Number: US-TARO-2014P1000741

PATIENT
  Sex: Male
  Weight: 27.22 kg

DRUGS (1)
  1. LORATADINE SYRUP (LORATADINE ORAL SOLUTION USP) 5MG/5ML [Suspect]
     Active Substance: LORATADINE
     Indication: PYREXIA
     Dosage: QD
     Dates: start: 20140106, end: 20140122

REACTIONS (4)
  - Oropharyngeal pain [Unknown]
  - Cough [Unknown]
  - Malaise [Unknown]
  - Off label use [Unknown]
